FAERS Safety Report 4741340-6 (Version None)
Quarter: 2005Q3

REPORT INFORMATION
  Report Type: 
  Country: None (occurrence: None)
  Receive Date: 20050810
  Receipt Date: 20050125
  Transmission Date: 20060218
  Serious: Yes (Hospitalization)
  Sender: FDA-Public Use
  Company Number: PHHO2005FR01587

PATIENT
  Age: 83 Year
  Sex: Male
  Weight: 78 kg

DRUGS (9)
  1. EXELON [Suspect]
     Indication: DEMENTIA
     Dosage: LOW DOSE
     Route: 048
     Dates: start: 20041222, end: 20050121
  2. AMLODIPINE BESYLATE [Concomitant]
  3. AUGMENTIN '125' [Concomitant]
  4. ATACAND [Concomitant]
  5. PIASCLEDINE [Concomitant]
  6. SEROPRAM [Concomitant]
  7. ALLOPURINOL [Suspect]
  8. INOVAN [Concomitant]
  9. LASIX [Concomitant]

REACTIONS (7)
  - ASTHENIA [None]
  - BLOOD CREATININE INCREASED [None]
  - PURPURA [None]
  - PYREXIA [None]
  - RENAL FAILURE ACUTE [None]
  - SYSTEMIC INFLAMMATORY RESPONSE SYNDROME [None]
  - VASCULITIS [None]
